FAERS Safety Report 6638734-0 (Version None)
Quarter: 2010Q1

REPORT INFORMATION
  Report Type: 
  Country: None (occurrence: None)
  Receive Date: 20100317
  Receipt Date: 20100305
  Transmission Date: 20100710
  Serious: Yes (Other)
  Sender: FDA-Public Use
  Company Number: AU-PFIZER INC-2008090319

PATIENT

DRUGS (1)
  1. SUTENT [Suspect]

REACTIONS (1)
  - OSTEONECROSIS [None]
